FAERS Safety Report 22368996 (Version 2)
Quarter: 2023Q2

REPORT INFORMATION
  Report Type: Spontaneous
  Country: US (occurrence: US)
  Receive Date: 20230525
  Receipt Date: 20230529
  Transmission Date: 20230722
  Serious: No
  Sender: FDA-Public Use
  Company Number: US-SANOFI-01627198

PATIENT
  Age: 69 Year
  Sex: Female

DRUGS (1)
  1. APIDRA [Suspect]
     Active Substance: INSULIN GLULISINE
     Indication: Diabetes mellitus
     Dosage: SLIDING SCALE TID AND DRUG TREATMENT DURATION:NA

REACTIONS (6)
  - Muscle spasms [Unknown]
  - Peripheral swelling [Unknown]
  - Fatigue [Unknown]
  - Muscle spasms [Unknown]
  - Expired product administered [Unknown]
  - Intentional dose omission [Unknown]
